FAERS Safety Report 8206293-7 (Version None)
Quarter: 2012Q1

REPORT INFORMATION
  Report Type: 
  Country: None (occurrence: None)
  Receive Date: 20120313
  Receipt Date: 20120306
  Transmission Date: 20120608
  Serious: Yes (Hospitalization)
  Sender: FDA-Public Use
  Company Number: PHHY2011NO90237

PATIENT
  Sex: Male

DRUGS (3)
  1. EXELON [Suspect]
     Indication: DEMENTIA
     Dosage: 4.6 MG, PER 24 H
     Route: 062
     Dates: start: 20110601
  2. EXELON [Suspect]
     Dosage: 9.5 MG, PER 24 H
     Route: 062
  3. WARFARIN SODIUM [Suspect]

REACTIONS (9)
  - GASTRIC ULCER [None]
  - INTERNATIONAL NORMALISED RATIO INCREASED [None]
  - DIARRHOEA [None]
  - OVERDOSE [None]
  - WRONG TECHNIQUE IN DRUG USAGE PROCESS [None]
  - NAUSEA [None]
  - GASTRITIS BACTERIAL [None]
  - VOMITING [None]
  - HAEMORRHAGE [None]
